FAERS Safety Report 21786882 (Version 1)
Quarter: 2022Q4

REPORT INFORMATION
  Report Type: Spontaneous
  Country: US (occurrence: US)
  Receive Date: 20221228
  Receipt Date: 20221228
  Transmission Date: 20230113
  Serious: Yes (Other)
  Sender: FDA-Public Use
  Company Number: US-PFIZER INC- 2019408004

PATIENT
  Sex: Male

DRUGS (2)
  1. KEYTRUDA [Suspect]
     Active Substance: PEMBROLIZUMAB
     Dosage: UNK
     Dates: start: 2019
  2. INLYTA [Suspect]
     Active Substance: AXITINIB
     Dosage: 20 MG TWICE DAILY
     Dates: start: 2002

REACTIONS (1)
  - Cytomegalovirus infection [Unknown]
